FAERS Safety Report 16278281 (Version 1)
Quarter: 2019Q2

REPORT INFORMATION
  Report Type: Spontaneous
  Country: US (occurrence: US)
  Receive Date: 20190506
  Receipt Date: 20190506
  Transmission Date: 20190711
  Serious: Yes (Life-Threatening, Hospitalization, Other)
  Sender: FDA-Public Use
  Company Number: US-BRISTOL-MYERS SQUIBB COMPANY-BMS-2019-040755

PATIENT
  Sex: Female
  Weight: 54.43 kg

DRUGS (1)
  1. WARFARIN SODIUM. [Suspect]
     Active Substance: WARFARIN SODIUM
     Indication: CEREBROVASCULAR ACCIDENT PROPHYLAXIS
     Dosage: 4 MILLIGRAM, QD
     Route: 048
     Dates: start: 201308

REACTIONS (8)
  - Epistaxis [Unknown]
  - Cardiac disorder [Unknown]
  - Gastrointestinal haemorrhage [Unknown]
  - Haemoglobin decreased [Unknown]
  - Eye haemorrhage [Unknown]
  - Oedema peripheral [Unknown]
  - Ischaemic stroke [Unknown]
  - Aortic valve disease [Unknown]
